FAERS Safety Report 7440243-6 (Version None)
Quarter: 2011Q2

REPORT INFORMATION
  Report Type: 
  Country: None (occurrence: None)
  Receive Date: 20110427
  Receipt Date: 20100604
  Transmission Date: 20111010
  Serious: Yes (Other)
  Sender: FDA-Public Use
  Company Number: US-PFIZER INC-2010071139

PATIENT
  Sex: Male
  Weight: 77.098 kg

DRUGS (6)
  1. CEFUROXIME [Concomitant]
     Dosage: UNK
  2. ZITHROMAX [Suspect]
     Dosage: 250 MG, 2X/DAY
     Route: 048
     Dates: start: 20100524, end: 20100529
  3. GLYBURIDE [Concomitant]
     Dosage: UNK
  4. PRAVASTATIN [Concomitant]
     Dosage: UNK
  5. METFORMIN [Concomitant]
     Dosage: UNK
  6. FINASTERIDE [Concomitant]
     Dosage: UNK

REACTIONS (1)
  - DEAFNESS [None]
